FAERS Safety Report 7738378-3 (Version None)
Quarter: 2011Q3

REPORT INFORMATION
  Report Type: 
  Country: None (occurrence: None)
  Receive Date: 20110908
  Receipt Date: 20110824
  Transmission Date: 20111222
  Serious: Yes (Death, Hospitalization)
  Sender: FDA-Public Use
  Company Number: GB-ARROW GEN-2011-14052

PATIENT
  Age: 73 Year
  Sex: Female

DRUGS (5)
  1. PRIMAX [Suspect]
     Indication: INFECTION
     Dosage: 500 MG 2/DAY
  2. AZATHIOPRINE [Suspect]
     Indication: RENAL TRANSPLANT
     Dosage: 50 MG, DAILY
  3. CYCLOSPORINE [Suspect]
     Indication: RENAL TRANSPLANT
     Dosage: 75 MG, BID
  4. PREDNISOLONE [Suspect]
     Indication: RENAL TRANSPLANT
     Dosage: 7.5 MG, DAILY
  5. SODIUM CHLORIDE (UNKNOWN) [Suspect]
     Indication: DEHYDRATION
     Dosage: 1000 ML OF 0.9% OVER 8 HOURS AND REPEATED AS NEEDED

REACTIONS (6)
  - RESPIRATORY FAILURE [None]
  - RENAL FAILURE [None]
  - NOCARDIA SEPSIS [None]
  - PNEUMONIA [None]
  - DEPRESSED LEVEL OF CONSCIOUSNESS [None]
  - CYTOMEGALOVIRUS INFECTION [None]
